FAERS Safety Report 16168195 (Version 2)
Quarter: 2019Q2

REPORT INFORMATION
  Report Type: Spontaneous
  Country: US (occurrence: US)
  Receive Date: 20190408
  Receipt Date: 20190415
  Transmission Date: 20190711
  Serious: No
  Sender: FDA-Public Use
  Company Number: US-PFIZER INC-2019149421

PATIENT
  Age: 11 Month
  Sex: Female

DRUGS (1)
  1. EUCRISA [Suspect]
     Active Substance: CRISABOROLE
     Dosage: UNK, (APPLY TO AFFECTED AREAS ONCE TO TWICE A DAY)

REACTIONS (2)
  - Product use issue [Unknown]
  - Application site burn [Unknown]
